FAERS Safety Report 15216754 (Version 2)
Quarter: 2018Q3

REPORT INFORMATION
  Report Type: Report from Study
  Country: US (occurrence: US)
  Receive Date: 20180730
  Receipt Date: 20180807
  Transmission Date: 20181010
  Serious: Yes (Death, Other)
  Sender: FDA-Public Use
  Company Number: US-GILEAD-2018-0342775

PATIENT
  Age: 74 Year
  Sex: Male

DRUGS (8)
  1. TYVASO [Concomitant]
     Active Substance: TREPROSTINIL
     Indication: PRODUCT USED FOR UNKNOWN INDICATION
     Dosage: UNK
     Route: 065
  2. TREPROSTINIL [Concomitant]
     Active Substance: TREPROSTINIL
  3. SILDENAFIL CITRATE. [Concomitant]
     Active Substance: SILDENAFIL CITRATE
  4. TADALAFIL [Concomitant]
     Active Substance: TADALAFIL
  5. AMBRISENTAN [Suspect]
     Active Substance: AMBRISENTAN
     Indication: ASBESTOSIS
  6. AMBRISENTAN [Suspect]
     Active Substance: AMBRISENTAN
     Indication: PULMONARY HYPERTENSION
     Dosage: 10 MG, QD
     Route: 065
     Dates: start: 20171012
  7. AMBRISENTAN [Suspect]
     Active Substance: AMBRISENTAN
     Indication: EMPHYSEMA
  8. ADCIRCA [Concomitant]
     Active Substance: TADALAFIL

REACTIONS (30)
  - Heart rate increased [Not Recovered/Not Resolved]
  - Peripheral swelling [Not Recovered/Not Resolved]
  - Productive cough [Not Recovered/Not Resolved]
  - Flushing [Not Recovered/Not Resolved]
  - Paraesthesia [Not Recovered/Not Resolved]
  - Hypoxia [Unknown]
  - Hypotension [Unknown]
  - Somnolence [Recovered/Resolved]
  - Joint swelling [Not Recovered/Not Resolved]
  - Flushing [Recovered/Resolved]
  - Skin tightness [Not Recovered/Not Resolved]
  - Dry skin [Not Recovered/Not Resolved]
  - Pruritus generalised [Not Recovered/Not Resolved]
  - Fatigue [Not Recovered/Not Resolved]
  - Skin abrasion [Not Recovered/Not Resolved]
  - Drug ineffective for unapproved indication [Unknown]
  - Decreased appetite [Not Recovered/Not Resolved]
  - Nasal congestion [Not Recovered/Not Resolved]
  - Intra-abdominal fluid collection [Not Recovered/Not Resolved]
  - Epigastric discomfort [Not Recovered/Not Resolved]
  - Dyspnoea [Not Recovered/Not Resolved]
  - Cyanosis [Not Recovered/Not Resolved]
  - Rhinorrhoea [Not Recovered/Not Resolved]
  - Syncope [Unknown]
  - Cough [Not Recovered/Not Resolved]
  - Dyspnoea exertional [Unknown]
  - Oedema peripheral [Unknown]
  - Death [Fatal]
  - Pulmonary hypertension [Unknown]
  - Off label use [Unknown]

NARRATIVE: CASE EVENT DATE: 20180723
